FAERS Safety Report 15023194 (Version 1)
Quarter: 2018Q2

REPORT INFORMATION
  Report Type: Report from Study
  Country: ES (occurrence: ES)
  Receive Date: 20180618
  Receipt Date: 20180618
  Transmission Date: 20180711
  Serious: Yes (Life-Threatening, Hospitalization)
  Sender: FDA-Public Use
  Company Number: ES-TEVA-2018-ES-907605

PATIENT
  Age: 67 Year
  Sex: Male

DRUGS (3)
  1. DESMOPRESINA (3746A) [Concomitant]
     Indication: HYPOPITUITARISM
     Dosage: .1 MILLIGRAM DAILY;
     Route: 048
     Dates: start: 200801, end: 20170210
  2. DESMOPRESINA (3746A) [Suspect]
     Active Substance: DESMOPRESSIN
     Indication: HYPOPITUITARISM
     Route: 048
     Dates: start: 20170211, end: 20170217
  3. HIDROALTESONA COMPRIMIDOS, 30 COMPRIMIDOS [Concomitant]
     Indication: HYPOPITUITARISM
     Dosage: 40 MILLIGRAM DAILY;
     Route: 048
     Dates: start: 200801

REACTIONS (1)
  - Hyponatraemia [Recovered/Resolved]

NARRATIVE: CASE EVENT DATE: 201702
